FAERS Safety Report 11114232 (Version 3)
Quarter: 2016Q2

REPORT INFORMATION
  Report Type: Spontaneous
  Country: BR (occurrence: BR)
  Receive Date: 20150514
  Receipt Date: 20160401
  Transmission Date: 20160815
  Serious: Yes (Life-Threatening, Hospitalization)
  Sender: FDA-Public Use
  Company Number: BR-B.I. PHARMACEUTICALS,INC./RIDGEFIELD-2015-BI-25013BR

PATIENT
  Sex: Male
  Weight: 58 kg

DRUGS (8)
  1. AMINOFILINA [Concomitant]
     Active Substance: AMINOPHYLLINE
     Indication: BRONCHITIS
     Dosage: 100 MG
     Route: 048
     Dates: start: 201411
  2. OXIGEN [Concomitant]
     Indication: CHRONIC OBSTRUCTIVE PULMONARY DISEASE
     Route: 055
     Dates: start: 201305
  3. SPIRIVA RESPIMAT [Suspect]
     Active Substance: TIOTROPIUM BROMIDE
     Indication: CHRONIC OBSTRUCTIVE PULMONARY DISEASE
     Dosage: 4 PUF
     Route: 055
     Dates: start: 201210
  4. FORASEQ [Concomitant]
     Active Substance: BUDESONIDE\FORMOTEROL FUMARATE
     Indication: CHRONIC OBSTRUCTIVE PULMONARY DISEASE
     Dosage: DOSE PER APPLICATION: 12/400MG; DAILY DOSE: 48/1600MG
     Route: 055
     Dates: start: 201503
  5. AMINOFILINA [Concomitant]
     Active Substance: AMINOPHYLLINE
     Indication: DYSPNOEA
  6. SERETID [Concomitant]
     Indication: CHRONIC OBSTRUCTIVE PULMONARY DISEASE
     Dosage: STRENGTH: 50/250MG; DOSE PER APPLICATION: 200/1000MG
     Route: 055
     Dates: start: 2012
  7. SPIRIVA RESPIMAT [Suspect]
     Active Substance: TIOTROPIUM BROMIDE
     Dosage: 1 PUF
     Route: 055
     Dates: end: 201510
  8. SPIRIVA RESPIMAT [Suspect]
     Active Substance: TIOTROPIUM BROMIDE
     Dosage: 4 PUF
     Route: 055
     Dates: start: 201510

REACTIONS (10)
  - Bronchial obstruction [Not Recovered/Not Resolved]
  - Dry mouth [Not Recovered/Not Resolved]
  - Pneumonia [Recovered/Resolved]
  - Dysphonia [Not Recovered/Not Resolved]
  - Fluid retention [Not Recovered/Not Resolved]
  - Tachycardia [Not Recovered/Not Resolved]
  - Anxiety [Not Recovered/Not Resolved]
  - Pulmonary fibrosis [Not Recovered/Not Resolved]
  - Gastrooesophageal reflux disease [Not Recovered/Not Resolved]
  - Pneumonia [Recovered/Resolved]

NARRATIVE: CASE EVENT DATE: 2013
